FAERS Safety Report 5299285-1 (Version None)
Quarter: 2007Q2

REPORT INFORMATION
  Report Type: 
  Country: None (occurrence: None)
  Receive Date: 20070410
  Receipt Date: 20060720
  Transmission Date: 20071010
  Serious: Yes (Other)
  Sender: FDA-Public Use
  Company Number: BDI-008445

PATIENT
  Sex: Male

DRUGS (2)
  1. ISOVUE-300 [Suspect]
     Indication: LUMBAR PUNCTURE
     Dosage: 13 ML ONCE IT
     Dates: start: 20040628, end: 20040628
  2. ISOVUE-300 [Suspect]
     Indication: SPINAL MYELOGRAM
     Dosage: 13 ML ONCE IT
     Dates: start: 20040628, end: 20040628

REACTIONS (2)
  - CONVULSION [None]
  - RHABDOMYOLYSIS [None]
